FAERS Safety Report 8364753-2 (Version None)
Quarter: 2012Q2

REPORT INFORMATION
  Report Type: 
  Country: None (occurrence: None)
  Receive Date: 20120516
  Receipt Date: 20120504
  Transmission Date: 20120825
  Serious: Yes (Life-Threatening, Other)
  Sender: FDA-Public Use
  Company Number: US-ROCHE-1061604

PATIENT
  Sex: Male
  Weight: 103.97 kg

DRUGS (14)
  1. FOLIC ACID [Concomitant]
     Indication: ANAEMIA
     Route: 048
     Dates: start: 20120220, end: 20120313
  2. FERROUS SULFATE TAB [Concomitant]
     Indication: ANAEMIA
     Route: 048
     Dates: start: 20120220, end: 20120313
  3. BENADRYL [Concomitant]
     Indication: PRURITUS
     Route: 048
  4. FISH OIL [Concomitant]
     Route: 048
  5. LIDOCAINE [Concomitant]
  6. VICTRELIS [Concomitant]
     Indication: HEPATITIS C
     Route: 048
     Dates: start: 20120203, end: 20120320
  7. ASCORBIC ACID [Concomitant]
     Route: 048
  8. NAPROXEN (ALEVE) [Concomitant]
     Indication: PAIN
     Route: 048
  9. NIACIN [Concomitant]
     Route: 048
  10. ALOE/VITAMIN E [Concomitant]
  11. PEGASYS [Suspect]
     Indication: HEPATITIS C
     Route: 058
     Dates: start: 20120106, end: 20120320
  12. COPEGUS [Suspect]
     Indication: HEPATITIS C
     Route: 048
     Dates: start: 20120106, end: 20120320
  13. ASPIRIN [Concomitant]
     Indication: PAIN
     Route: 048
  14. HYDROCORTISONE CREAM [Concomitant]
     Indication: RASH PRURITIC

REACTIONS (7)
  - PHARYNGEAL OEDEMA [None]
  - SKIN REACTION [None]
  - WHEEZING [None]
  - ORAL DISORDER [None]
  - RASH [None]
  - EYE SWELLING [None]
  - ANGIOEDEMA [None]
